FAERS Safety Report 4263744-0 (Version None)
Quarter: 2004Q1

REPORT INFORMATION
  Report Type: 
  Country: None (occurrence: None)
  Receive Date: 20040102
  Receipt Date: 20031223
  Transmission Date: 20041129
  Serious: Yes (Hospitalization)
  Sender: FDA-Public Use
  Company Number: HQWYE881823DEC03

PATIENT
  Age: 37 Year
  Sex: Male

DRUGS (2)
  1. PANTOLOC (PANTOPRAZOLE, TABLET, DELAYED RELEASE) [Suspect]
     Indication: ABDOMINAL PAIN UPPER
     Dosage: 20 MG 1X PER 1 DAY ORAL
     Route: 048
     Dates: start: 20030817, end: 20030820
  2. BEZALIP (BEZAFIBRATE) [Concomitant]

REACTIONS (5)
  - CHOLELITHIASIS [None]
  - DRUG TOXICITY [None]
  - GASTRITIS [None]
  - HEPATIC STEATOSIS [None]
  - HIATUS HERNIA [None]
